FAERS Safety Report 8046714-6 (Version None)
Quarter: 2012Q1

REPORT INFORMATION
  Report Type: 
  Country: None (occurrence: None)
  Receive Date: 20120116
  Receipt Date: 20120102
  Transmission Date: 20120608
  Serious: Yes (Hospitalization)
  Sender: FDA-Public Use
  Company Number: FR-BIOGENIDEC-2011BI045527

PATIENT
  Age: 22 Year
  Sex: Female

DRUGS (4)
  1. TYSABRI [Suspect]
     Indication: MULTIPLE SCLEROSIS
     Route: 042
     Dates: start: 20101201
  2. LOCOID [Concomitant]
     Indication: HYPERSENSITIVITY
     Dates: start: 20110901, end: 20110901
  3. TYSABRI [Suspect]
     Route: 042
     Dates: start: 20110830, end: 20110928
  4. EBASTINE [Concomitant]
     Indication: HYPERSENSITIVITY
     Route: 060
     Dates: start: 20110901, end: 20110901

REACTIONS (3)
  - ANGIOEDEMA [None]
  - MULTIPLE SCLEROSIS RELAPSE [None]
  - URTICARIA [None]
